FAERS Safety Report 19821201 (Version 1)
Quarter: 2021Q3

REPORT INFORMATION
  Report Type: Spontaneous
  Country: US (occurrence: US)
  Receive Date: 20210909
  Receipt Date: 20210909
  Transmission Date: 20211014
  Serious: Yes (Hospitalization)
  Sender: FDA-Public Use
  Company Number: None

PATIENT
  Age: 56 Year
  Sex: Female
  Weight: 113.2 kg

DRUGS (34)
  1. PLAQUENIL [Concomitant]
     Active Substance: HYDROXYCHLOROQUINE SULFATE
  2. NORVASC [Concomitant]
     Active Substance: AMLODIPINE BESYLATE
  3. DAPSONE. [Concomitant]
     Active Substance: DAPSONE
  4. LYRICIA [Concomitant]
  5. VITAMIN D3 [Concomitant]
     Active Substance: CHOLECALCIFEROL
  6. XANAX [Concomitant]
     Active Substance: ALPRAZOLAM
  7. CARVEDILOL. [Concomitant]
     Active Substance: CARVEDILOL
  8. METOCLOPRAMIDE. [Concomitant]
     Active Substance: METOCLOPRAMIDE
  9. TRAMADOL. [Concomitant]
     Active Substance: TRAMADOL
  10. VITAMIN B [Concomitant]
     Active Substance: VITAMIN B
  11. NORCO [Concomitant]
     Active Substance: ACETAMINOPHEN\HYDROCODONE BITARTRATE
  12. ACETAMINOPHEN. [Concomitant]
     Active Substance: ACETAMINOPHEN
  13. MAGOX [Concomitant]
  14. PYRIDOXINE [Concomitant]
     Active Substance: PYRIDOXINE
  15. MAVYRET [Suspect]
     Active Substance: GLECAPREVIR\PIBRENTASVIR
     Indication: HEPATITIS C
     Route: 048
     Dates: start: 20200415, end: 20200710
  16. ASPIRIN. [Concomitant]
     Active Substance: ASPIRIN
  17. COLACE [Concomitant]
     Active Substance: DOCUSATE SODIUM
  18. NITROGLYCERIN. [Concomitant]
     Active Substance: NITROGLYCERIN
  19. SEVELAMER [Concomitant]
     Active Substance: SEVELAMER
  20. LANTUS [Concomitant]
     Active Substance: INSULIN GLARGINE
  21. PRILOSEC [Concomitant]
     Active Substance: OMEPRAZOLE MAGNESIUM
  22. ZOFRAN [Concomitant]
     Active Substance: ONDANSETRON HYDROCHLORIDE
  23. VALGANCICLOVIR. [Concomitant]
     Active Substance: VALGANCICLOVIR
  24. ATORVASTATIN [Concomitant]
     Active Substance: ATORVASTATIN
  25. CINACALCET. [Concomitant]
     Active Substance: CINACALCET
  26. PROBIOTIC [Concomitant]
     Active Substance: PROBIOTICS NOS
  27. PRAVASTATIN. [Concomitant]
     Active Substance: PRAVASTATIN
  28. PROGRAF [Concomitant]
     Active Substance: TACROLIMUS
  29. BASAGLAR [Concomitant]
     Active Substance: INSULIN GLARGINE
  30. KLOPOPIN [Concomitant]
  31. POLYETHYLENE GLYCOL [Concomitant]
     Active Substance: POLYETHYLENE GLYCOLS
  32. FAMOTIDINE. [Concomitant]
     Active Substance: FAMOTIDINE
  33. FUROSEMIDE. [Concomitant]
     Active Substance: FUROSEMIDE
  34. CARDENE [Concomitant]
     Active Substance: NICARDIPINE HYDROCHLORIDE

REACTIONS (8)
  - Fatigue [None]
  - Dizziness [None]
  - Headache [None]
  - Klebsiella infection [None]
  - Myalgia [None]
  - Tachycardia [None]
  - Hypotension [None]
  - Pyrexia [None]

NARRATIVE: CASE EVENT DATE: 20201002
